FAERS Safety Report 8506187 (Version 3)
Quarter: 2012Q4

REPORT INFORMATION
  Report Type: 
  Country: US (occurrence: US)
  Receive Date: 20120412
  Receipt Date: 20121213
  Transmission Date: 20130627
  Serious: Yes (Hospitalization)
  Sender: FDA-Public Use
  Company Number: US-GLAXOSMITHKLINE-A0935797A

PATIENT
  Age: 43 Year
  Sex: Female

DRUGS (1)
  1. AVANDIA [Suspect]
     Indication: DIABETES MELLITUS
     Dosage: 8MG Per day
     Route: 048
     Dates: start: 20020903, end: 20070929

REACTIONS (6)
  - Cardiac failure [Not Recovered/Not Resolved]
  - Stress [Unknown]
  - Cerebrovascular accident [Unknown]
  - Cardiac pacemaker insertion [Unknown]
  - Stent placement [Unknown]
  - Hypoxia [Unknown]
